FAERS Safety Report 4351071-2 (Version None)
Quarter: 2004Q2

REPORT INFORMATION
  Report Type: 
  Country: None (occurrence: None)
  Receive Date: 20040427
  Receipt Date: 20040420
  Transmission Date: 20050107
  Serious: No
  Sender: FDA-Public Use
  Company Number: 2004SE02022

PATIENT
  Sex: Female

DRUGS (2)
  1. MOPRAL [Suspect]
     Indication: GASTROOESOPHAGEAL REFLUX DISEASE
     Dosage: 20 MG DAILY; PO
     Route: 048
     Dates: start: 20020205, end: 20021217
  2. ESOPRAL [Suspect]
     Indication: GASTROOESOPHAGEAL REFLUX DISEASE
     Dosage: 20 MG DAILY; PO
     Route: 048
     Dates: end: 20030321

REACTIONS (24)
  - ABNORMAL DREAMS [None]
  - AMENORRHOEA [None]
  - ANXIETY [None]
  - APATHY [None]
  - ARTHRALGIA [None]
  - ASTHENIA [None]
  - COGNITIVE DISORDER [None]
  - CONDITION AGGRAVATED [None]
  - CRYING [None]
  - DEPRESSION [None]
  - FATIGUE [None]
  - FLUID RETENTION [None]
  - GASTROOESOPHAGEAL REFLUX DISEASE [None]
  - HALLUCINATION [None]
  - HALLUCINATION, AUDITORY [None]
  - HEADACHE [None]
  - HOT FLUSH [None]
  - HYPERHIDROSIS [None]
  - INSOMNIA [None]
  - MAJOR DEPRESSION [None]
  - NIGHTMARE [None]
  - OLIGOMENORRHOEA [None]
  - VOMITING [None]
  - WEIGHT INCREASED [None]
